FAERS Safety Report 9026788 (Version 2)
Quarter: 2013Q1

REPORT INFORMATION
  Report Type: Spontaneous
  Country: TW (occurrence: TW)
  Receive Date: 20130123
  Receipt Date: 20130204
  Transmission Date: 20140127
  Serious: Yes (Death)
  Sender: FDA-Public Use
  Company Number: TW-ASTELLAS-2013JP000409

PATIENT
  Age: 41 Year
  Sex: Male

DRUGS (4)
  1. PROGRAF [Suspect]
     Indication: LIVER TRANSPLANT
     Dosage: UNK
     Route: 048
     Dates: start: 20110708, end: 20121022
  2. HARNAL [Concomitant]
     Route: 048
  3. PRIMPERAN [Concomitant]
     Route: 048
  4. VOLTAREN                           /00372301/ [Concomitant]
     Route: 048

REACTIONS (1)
  - Vascular encephalopathy [Fatal]
